FAERS Safety Report 25192281 (Version 1)
Quarter: 2025Q2

REPORT INFORMATION
  Report Type: Spontaneous
  Country: US (occurrence: None)
  Receive Date: 20250412
  Receipt Date: 20250412
  Transmission Date: 20250717
  Serious: Yes (Hospitalization)
  Sender: FDA-CTU
  Company Number: None

PATIENT
  Age: 18 Year
  Sex: Male
  Weight: 68.5 kg

DRUGS (1)
  1. LEVOCARNITINE [Suspect]
     Active Substance: LEVOCARNITINE

REACTIONS (5)
  - Staphylococcal sepsis [None]
  - Staphylococcal infection [None]
  - Product prescribing error [None]
  - Underdose [None]
  - Incorrect dose administered [None]

NARRATIVE: CASE EVENT DATE: 20250326
